FAERS Safety Report 13988582 (Version 1)
Quarter: 2017Q3

REPORT INFORMATION
  Report Type: Spontaneous
  Country: US (occurrence: US)
  Receive Date: 20170919
  Receipt Date: 20170919
  Transmission Date: 20171128
  Serious: No
  Sender: FDA-Public Use
  Company Number: US-MISSION PHARMACAL COMPANY-2026889

PATIENT
  Age: 18 Year
  Sex: Female

DRUGS (2)
  1. THIOLA [Concomitant]
     Active Substance: TIOPRONIN
     Route: 065
     Dates: start: 20150805
  2. POTASSIUM CITRATE. [Suspect]
     Active Substance: POTASSIUM CITRATE
     Route: 065

REACTIONS (5)
  - Vomiting [Unknown]
  - Incorrect dose administered [Unknown]
  - Loss of consciousness [Unknown]
  - Drug ineffective [Unknown]
  - Drug dose omission [Unknown]
